FAERS Safety Report 8436989-3 (Version None)
Quarter: 2012Q2

REPORT INFORMATION
  Report Type: 
  Country: None (occurrence: None)
  Receive Date: 20120614
  Receipt Date: 20111128
  Transmission Date: 20120825
  Serious: Yes (Life-Threatening)
  Sender: FDA-Public Use
  Company Number: US-AMGEN-USASP2011062758

PATIENT

DRUGS (1)
  1. ARANESP [Suspect]
     Indication: NEPHROPATHY
     Dosage: UNK
     Dates: start: 20090501

REACTIONS (1)
  - DEEP VEIN THROMBOSIS [None]
